FAERS Safety Report 10469117 (Version 1)
Quarter: 2014Q3

REPORT INFORMATION
  Report Type: Spontaneous
  Country: US (occurrence: None)
  Receive Date: 20140922
  Receipt Date: 20140922
  Transmission Date: 20150326
  Serious: Yes (Death)
  Sender: FDA-Public Use
  Company Number: None

PATIENT
  Age: 80 Year
  Sex: Female

DRUGS (9)
  1. FIDAZOMYCIN [Concomitant]
  2. LEVOPHED [Concomitant]
     Active Substance: NOREPINEPHRINE BITARTRATE
  3. FECAL MICROBIOTA [Suspect]
     Active Substance: FECAL MICROBIOTA
     Indication: CLOSTRIDIUM DIFFICILE INFECTION
     Dosage: 30ML, ONCE, J-TUBE
     Dates: start: 20140808
  4. GLUCOCORTICOIDS [Concomitant]
     Active Substance: UNSPECIFIED INGREDIENT
  5. DIFFICILE ANTIBIOTICS [Concomitant]
  6. VANCOMYCIN [Concomitant]
     Active Substance: VANCOMYCIN
  7. METRONIDAZOLE. [Concomitant]
     Active Substance: METRONIDAZOLE
  8. ANTI-C [Concomitant]
  9. FECAL MICROBIOTA [Suspect]
     Active Substance: FECAL MICROBIOTA
     Indication: ILL-DEFINED DISORDER
     Dosage: 30ML, ONCE, J-TUBE
     Dates: start: 20140808

REACTIONS (4)
  - No therapeutic response [None]
  - Hypotension [None]
  - Pseudomembranous colitis [None]
  - General physical health deterioration [None]

NARRATIVE: CASE EVENT DATE: 20140811
